FAERS Safety Report 13095480 (Version 1)
Quarter: 2017Q1

REPORT INFORMATION
  Report Type: Spontaneous
  Country: GB (occurrence: GB)
  Receive Date: 20170108
  Receipt Date: 20170108
  Transmission Date: 20170428
  Serious: Yes (Hospitalization)
  Sender: FDA-Public Use
  Company Number: GB-MYLANLABS-2017M1000477

PATIENT

DRUGS (3)
  1. CLOZARIL [Suspect]
     Active Substance: CLOZAPINE
     Dosage: 175 MG, QD
     Route: 048
  2. CLOZARIL [Suspect]
     Active Substance: CLOZAPINE
     Indication: SCHIZOPHRENIA
     Dosage: UNK
     Route: 048
     Dates: start: 20130402
  3. CLOZARIL [Suspect]
     Active Substance: CLOZAPINE
     Dosage: 700 MG, QD
     Route: 048

REACTIONS (4)
  - Somnolence [Unknown]
  - Drug dispensing error [Unknown]
  - Incorrect dose administered [Unknown]
  - Salivary hypersecretion [Unknown]
